FAERS Safety Report 15949679 (Version 1)
Quarter: 2019Q1

REPORT INFORMATION
  Report Type: Report from Study
  Country: US (occurrence: US)
  Receive Date: 20190212
  Receipt Date: 20190212
  Transmission Date: 20190417
  Serious: Yes (Life-Threatening, Hospitalization)
  Sender: FDA-Public Use
  Company Number: US-BAYER-2019-028660

PATIENT
  Age: 75 Year
  Sex: Female

DRUGS (7)
  1. ASPIRIN. [Suspect]
     Active Substance: ASPIRIN
     Indication: ATRIAL FIBRILLATION
     Dosage: UNK
  2. DESMOPRESSIN [Concomitant]
     Active Substance: DESMOPRESSIN
  3. FEIBA [Concomitant]
     Active Substance: ANTI-INHIBITOR COAGULANT COMPLEX
     Dosage: 16 UNK
  4. TRANEXAMIC ACID. [Concomitant]
     Active Substance: TRANEXAMIC ACID
  5. ASPIRIN. [Interacting]
     Active Substance: ASPIRIN
     Indication: ANTIPLATELET THERAPY
  6. APIXABAN [Interacting]
     Active Substance: APIXABAN
     Indication: ATRIAL FIBRILLATION
     Dosage: UNK
  7. APIXABAN [Interacting]
     Active Substance: APIXABAN
     Indication: ANTICOAGULANT THERAPY

REACTIONS (3)
  - Cerebral haemorrhage [None]
  - Labelled drug-drug interaction medication error [None]
  - Intraventricular haemorrhage [None]
